FAERS Safety Report 25376936 (Version 1)
Quarter: 2025Q2

REPORT INFORMATION
  Report Type: Spontaneous
  Country: CN (occurrence: CN)
  Receive Date: 20250530
  Receipt Date: 20250530
  Transmission Date: 20250717
  Serious: Yes (Other)
  Sender: BEIGENE
  Company Number: CN-BEIGENE-BGN-2025-008387

PATIENT
  Age: 34 Year
  Weight: 50 kg

DRUGS (8)
  1. TISLELIZUMAB [Suspect]
     Active Substance: TISLELIZUMAB
     Indication: Ovarian neoplasm
  2. TISLELIZUMAB [Suspect]
     Active Substance: TISLELIZUMAB
     Route: 042
  3. TISLELIZUMAB [Suspect]
     Active Substance: TISLELIZUMAB
     Route: 042
  4. TISLELIZUMAB [Suspect]
     Active Substance: TISLELIZUMAB
  5. GEMCITABINE HYDROCHLORIDE [Suspect]
     Active Substance: GEMCITABINE HYDROCHLORIDE
     Indication: Ovarian neoplasm
     Route: 042
  6. GEMCITABINE HYDROCHLORIDE [Suspect]
     Active Substance: GEMCITABINE HYDROCHLORIDE
  7. BEVACIZUMAB [Suspect]
     Active Substance: BEVACIZUMAB
     Indication: Ovarian neoplasm
     Route: 042
  8. BEVACIZUMAB [Suspect]
     Active Substance: BEVACIZUMAB

REACTIONS (1)
  - Myelosuppression [Unknown]
